FAERS Safety Report 6758720-X (Version None)
Quarter: 2010Q2

REPORT INFORMATION
  Report Type: 
  Country: None (occurrence: None)
  Receive Date: 20100607
  Receipt Date: 20100601
  Transmission Date: 20101027
  Serious: Yes (Other)
  Sender: FDA-Public Use
  Company Number: CA-MERCK-1006USA00226

PATIENT
  Age: 45 Year
  Sex: Male
  Weight: 103 kg

DRUGS (6)
  1. JANUVIA [Suspect]
     Route: 048
  2. ASPIRIN [Concomitant]
     Route: 065
  3. ATACAND HCT [Concomitant]
     Route: 065
  4. AMARYL [Concomitant]
     Route: 065
  5. METFORMIN [Concomitant]
     Route: 065
  6. ACTOS [Concomitant]
     Route: 065

REACTIONS (2)
  - LACUNAR INFARCTION [None]
  - WEIGHT DECREASED [None]
